FAERS Safety Report 18772953 (Version 1)
Quarter: 2021Q1

REPORT INFORMATION
  Report Type: Spontaneous
  Country: US (occurrence: US)
  Receive Date: 20210121
  Receipt Date: 20210121
  Transmission Date: 20210419
  Serious: Yes (Other)
  Sender: FDA-Public Use
  Company Number: None

PATIENT
  Age: 70 Year
  Sex: Male
  Weight: 94 kg

DRUGS (1)
  1. XIIDRA [Suspect]
     Active Substance: LIFITEGRAST
     Indication: DRY EYE
     Dosage: ?          QUANTITY:1 DROP(S);?
     Route: 047
     Dates: start: 20201118, end: 20210121

REACTIONS (4)
  - Vision blurred [None]
  - Ocular hyperaemia [None]
  - Visual acuity reduced [None]
  - Product quality control issue [None]

NARRATIVE: CASE EVENT DATE: 20201201
